FAERS Safety Report 7198578-0 (Version None)
Quarter: 2010Q4

REPORT INFORMATION
  Report Type: 
  Country: None (occurrence: None)
  Receive Date: 20101227
  Receipt Date: 20101217
  Transmission Date: 20110411
  Serious: No
  Sender: FDA-Public Use
  Company Number: US-JNJFOC-20101207035

PATIENT
  Sex: Male
  Weight: 73.48 kg

DRUGS (1)
  1. DURAGESIC-50 [Suspect]
     Indication: PAIN
     Route: 062

REACTIONS (2)
  - DRUG DOSE OMISSION [None]
  - PRODUCT ADHESION ISSUE [None]
